FAERS Safety Report 7466513-3 (Version None)
Quarter: 2011Q2

REPORT INFORMATION
  Report Type: 
  Country: None (occurrence: None)
  Receive Date: 20110509
  Receipt Date: 20100818
  Transmission Date: 20111010
  Serious: No
  Sender: FDA-Public Use
  Company Number: US-ALEXION-A201001029

PATIENT
  Sex: Male

DRUGS (11)
  1. SOLIRIS [Suspect]
     Dosage: 900 MG, Q10-1/2DAYS IN MI
     Route: 042
     Dates: start: 20070101, end: 20080109
  2. SOLIRIS [Suspect]
     Dosage: 1200 MG, Q2W IN FL
     Route: 042
     Dates: start: 20080110
  3. SOLIRIS [Suspect]
     Dosage: 900 MG, Q12DAYS IN FL
     Route: 042
  4. ASPIRIN [Concomitant]
     Dosage: 81 MG, QD
     Route: 048
  5. PROCRIT                            /00909301/ [Concomitant]
     Dosage: 4000 U QW
     Dates: start: 20070701
  6. SOLIRIS [Suspect]
     Indication: PAROXYSMAL NOCTURNAL HAEMOGLOBINURIA
     Dosage: 900 MG,  Q2W
     Route: 042
     Dates: start: 20040101
  7. PREDNISONE [Concomitant]
     Dosage: 10 MG, QD
  8. FOLIC ACID [Concomitant]
     Dosage: UNK
  9. METOPROLOL TARTRATE [Concomitant]
     Dosage: UNK
  10. SIMVASTATIN [Concomitant]
     Dosage: UNK
  11. SOLIRIS [Suspect]
     Dosage: 900 MG, Q12 DAYS IN FL
     Route: 042
     Dates: end: 20070101

REACTIONS (1)
  - PLATELET COUNT DECREASED [None]
